FAERS Safety Report 7346685-1 (Version None)
Quarter: 2011Q1

REPORT INFORMATION
  Report Type: 
  Country: None (occurrence: None)
  Receive Date: 20110302
  Receipt Date: 20110224
  Transmission Date: 20110831
  Serious: Yes (Other)
  Sender: FDA-Public Use
  Company Number: CAP11000043

PATIENT
  Age: 69 Year
  Sex: Female

DRUGS (4)
  1. COVERSYL /00790701 [Concomitant]
  2. CALTRATE /00108001/ (CALCIUM CARBONATE) [Concomitant]
  3. METFORMIN (METFORMIN) [Concomitant]
  4. ACTONEL [Suspect]
     Indication: OSTEOPOROSIS
     Dosage: 35 MG ONCE WEEKLY, ORAL
     Route: 048
     Dates: start: 20010101, end: 20110101

REACTIONS (1)
  - BREAST CANCER FEMALE [None]
